FAERS Safety Report 24966026 (Version 1)
Quarter: 2025Q1

REPORT INFORMATION
  Report Type: Spontaneous
  Country: US (occurrence: None)
  Receive Date: 20250213
  Receipt Date: 20250213
  Transmission Date: 20250409
  Serious: Yes (unspecified)
  Sender: FDA-CTU
  Company Number: None

PATIENT
  Age: 64 Year
  Sex: Male

DRUGS (1)
  1. HUMIRA [Suspect]
     Active Substance: ADALIMUMAB
     Indication: Rheumatoid arthritis
     Dosage: FREQUENCY : EVERY OTHER WEEK;?

REACTIONS (7)
  - Feeling of body temperature change [None]
  - Cold sweat [None]
  - Paraesthesia oral [None]
  - Atrial fibrillation [None]
  - Feeling abnormal [None]
  - Impaired work ability [None]
  - Therapy cessation [None]

NARRATIVE: CASE EVENT DATE: 20241229
